FAERS Safety Report 26207763 (Version 1)
Quarter: 2025Q4

REPORT INFORMATION
  Report Type: Spontaneous
  Country: GB (occurrence: GB)
  Receive Date: 20251229
  Receipt Date: 20251229
  Transmission Date: 20260117
  Serious: Yes (Other)
  Sender: MYLAN
  Company Number: GB-MYLANLABS-2025M1049437

PATIENT
  Sex: Male

DRUGS (4)
  1. CLOZARIL [Suspect]
     Active Substance: CLOZAPINE
     Indication: Schizophrenia
     Dosage: UNK, BID (100 MG IN THE MORNING AND 225 MG IN THE EVENING)
     Route: 061
     Dates: start: 20241015, end: 20251216
  2. CLOZARIL [Suspect]
     Active Substance: CLOZAPINE
     Dosage: UNK, BID (100 MG IN THE MORNING AND 225 MG IN THE EVENING)
     Route: 048
     Dates: start: 20241015, end: 20251216
  3. CLOZARIL [Suspect]
     Active Substance: CLOZAPINE
     Dosage: UNK, BID (100 MG IN THE MORNING AND 225 MG IN THE EVENING)
     Route: 048
     Dates: start: 20241015, end: 20251216
  4. CLOZARIL [Suspect]
     Active Substance: CLOZAPINE
     Dosage: UNK, BID (100 MG IN THE MORNING AND 225 MG IN THE EVENING)
     Route: 061
     Dates: start: 20241015, end: 20251216

REACTIONS (3)
  - Thrombocytopenia [Unknown]
  - Mental disorder [Unknown]
  - Treatment noncompliance [Unknown]
